FAERS Safety Report 22078352 (Version 1)
Quarter: 2023Q1

REPORT INFORMATION
  Report Type: Spontaneous
  Country: DE (occurrence: DE)
  Receive Date: 20230309
  Receipt Date: 20230309
  Transmission Date: 20230418
  Serious: Yes (Death, Life-Threatening, Hospitalization, Other)
  Sender: FDA-Public Use
  Company Number: DE-SHR-01/00934-GBD

PATIENT
  Age: 78 Year
  Sex: Female
  Weight: 60 kg

DRUGS (2)
  1. GADOBUTROL [Suspect]
     Active Substance: GADOBUTROL
     Indication: Magnetic resonance imaging
     Dosage: 6 ML
     Route: 042
     Dates: start: 20010622, end: 20010622
  2. GADOBUTROL [Suspect]
     Active Substance: GADOBUTROL
     Indication: Headache

REACTIONS (13)
  - Shock [Fatal]
  - Dyspnoea [Fatal]
  - Bradycardia [Fatal]
  - Anaphylactic reaction [Fatal]
  - Pulmonary oedema [Fatal]
  - Cyanosis [Fatal]
  - Coma [Fatal]
  - Apnoea [Fatal]
  - Brain oedema [Fatal]
  - Cardiac arrest [Fatal]
  - Respiratory arrest [None]
  - Seizure [None]
  - Anaphylactoid reaction [None]

NARRATIVE: CASE EVENT DATE: 20010622
